FAERS Safety Report 13452634 (Version 2)
Quarter: 2017Q2

REPORT INFORMATION
  Report Type: Spontaneous
  Country: US (occurrence: US)
  Receive Date: 20170418
  Receipt Date: 20170428
  Transmission Date: 20170830
  Serious: Yes (Other)
  Sender: FDA-Public Use
  Company Number: US-SA-2017SA064200

PATIENT
  Age: 70 Year
  Sex: Female

DRUGS (2)
  1. LANTUS SOLOSTAR [Suspect]
     Active Substance: INSULIN GLARGINE
     Indication: TYPE 2 DIABETES MELLITUS
     Dosage: DOSE:50 UNIT(S)
     Route: 065
     Dates: end: 20170409
  2. SOLOSTAR [Concomitant]
     Active Substance: DEVICE
     Dates: end: 20170409

REACTIONS (6)
  - Memory impairment [Not Recovered/Not Resolved]
  - Dysphemia [Recovered/Resolved]
  - Asthenia [Recovered/Resolved]
  - Cardiac failure [Unknown]
  - Cerebrovascular accident [Not Recovered/Not Resolved]
  - Renal failure [Unknown]

NARRATIVE: CASE EVENT DATE: 2016
